FAERS Safety Report 4801578-6 (Version None)
Quarter: 2005Q4

REPORT INFORMATION
  Report Type: 
  Country: None (occurrence: None)
  Receive Date: 20051018
  Receipt Date: 20050914
  Transmission Date: 20060501
  Serious: Yes (Hospitalization)
  Sender: FDA-Public Use
  Company Number: BE-AMGEN-UK150855

PATIENT
  Sex: Male
  Weight: 75.3 kg

DRUGS (13)
  1. PALIFERMIN [Suspect]
     Indication: DRUG USE FOR UNKNOWN INDICATION
     Route: 042
     Dates: start: 20050814, end: 20050826
  2. VANCOMYCIN [Concomitant]
     Route: 042
     Dates: start: 20050907
  3. ROCEPHIN [Concomitant]
     Route: 042
     Dates: start: 20050907, end: 20050912
  4. AMIKIN [Concomitant]
     Route: 042
     Dates: start: 20050912
  5. CALCIUM-SANDOZ [Concomitant]
     Route: 048
     Dates: start: 20050816
  6. NEUPOGEN [Concomitant]
     Route: 058
  7. FOLVITE [Concomitant]
     Route: 048
     Dates: start: 20050816
  8. STILNOCT [Concomitant]
     Route: 048
     Dates: start: 20050816
  9. MERONEM [Concomitant]
     Route: 042
     Dates: start: 20050912
  10. CARMUSTINE [Concomitant]
     Route: 065
     Dates: start: 20050801
  11. ETOPOSIDE [Concomitant]
     Route: 065
     Dates: start: 20050801
  12. CYTARABINE [Concomitant]
     Route: 065
     Dates: start: 20050801
  13. METHOTREXATE [Concomitant]
     Route: 065
     Dates: start: 20050801

REACTIONS (2)
  - HEADACHE [None]
  - SOMNOLENCE [None]
